FAERS Safety Report 20372885 (Version 5)
Quarter: 2022Q2

REPORT INFORMATION
  Report Type: Spontaneous
  Country: US (occurrence: US)
  Receive Date: 20220125
  Receipt Date: 20220429
  Transmission Date: 20220721
  Serious: Yes (Other)
  Sender: FDA-Public Use
  Company Number: US-AMGEN-USASP2022004622

PATIENT
  Age: 71 Year
  Sex: Male

DRUGS (2)
  1. REPATHA [Suspect]
     Active Substance: EVOLOCUMAB
     Indication: Product used for unknown indication
     Dosage: 140 MILLIGRAM, Q2WK
     Route: 065
     Dates: start: 2019
  2. ASPIRIN [Concomitant]
     Active Substance: ASPIRIN

REACTIONS (11)
  - Goitre [Unknown]
  - Herpes zoster [Not Recovered/Not Resolved]
  - Agitation [Unknown]
  - Intentional product use issue [Unknown]
  - Adverse reaction [Unknown]
  - Device difficult to use [Unknown]
  - Fall [Unknown]
  - Tooth injury [Unknown]
  - Gait disturbance [Unknown]
  - COVID-19 [Unknown]
  - Rhinorrhoea [Unknown]

NARRATIVE: CASE EVENT DATE: 20190101
